FAERS Safety Report 12572105 (Version 2)
Quarter: 2016Q3

REPORT INFORMATION
  Report Type: Spontaneous
  Country: BR (occurrence: BR)
  Receive Date: 20160719
  Receipt Date: 20160801
  Transmission Date: 20161109
  Serious: Yes (Other)
  Sender: FDA-Public Use
  Company Number: PHHY2016BR098797

PATIENT
  Sex: Female
  Weight: 68 kg

DRUGS (14)
  1. SEEBRI BREEZHALER [Suspect]
     Active Substance: GLYCOPYRROLATE
     Indication: CHRONIC OBSTRUCTIVE PULMONARY DISEASE
     Dosage: 1 DF, UNK
     Route: 055
  2. PARACETAMOL [Concomitant]
     Active Substance: ACETAMINOPHEN
     Indication: HEADACHE
  3. ATROVENT [Concomitant]
     Active Substance: IPRATROPIUM BROMIDE
     Indication: PRODUCT USED FOR UNKNOWN INDICATION
     Dosage: 10 DRP, UNK
     Route: 055
  4. DIPIRONA [Concomitant]
     Active Substance: METAMIZOLE
     Indication: PAIN
  5. PARACETAMOL [Concomitant]
     Active Substance: ACETAMINOPHEN
     Indication: FIBROMYALGIA
     Dosage: 2 DF, QD
     Route: 048
  6. FORASEQ [Suspect]
     Active Substance: BUDESONIDE\FORMOTEROL FUMARATE
     Indication: CHRONIC OBSTRUCTIVE PULMONARY DISEASE
     Dosage: 4 DF (2 OF EACH TREATMENT), QD
     Route: 055
     Dates: start: 201502, end: 201603
  7. ACETILCISTEINA [Concomitant]
     Active Substance: ACETYLCYSTEINE
     Indication: INCREASED BRONCHIAL SECRETION
     Dosage: 600 UG/5G, QD (1 ENVELOPE A DAY)
     Route: 048
     Dates: start: 201502
  8. LOSARTAN. [Concomitant]
     Active Substance: LOSARTAN
     Indication: HYPERTENSION
     Dosage: 1 DF, QD
     Route: 048
     Dates: start: 2014
  9. PARACETAMOL [Concomitant]
     Active Substance: ACETAMINOPHEN
     Indication: PAIN
  10. SALINE [Concomitant]
     Active Substance: SODIUM CHLORIDE
     Indication: PRODUCT USED FOR UNKNOWN INDICATION
     Dosage: 10 ML, UNK
     Route: 055
  11. DIPIRONA [Concomitant]
     Active Substance: METAMIZOLE
     Indication: FIBROMYALGIA
     Dosage: 2 DF, QD
     Route: 048
  12. ALENIA                             /01538101/ [Concomitant]
     Active Substance: BUDESONIDE\FORMOTEROL FUMARATE
     Indication: CHRONIC OBSTRUCTIVE PULMONARY DISEASE
     Dosage: 2 DF, QD
     Route: 055
     Dates: start: 201604
  13. DIPIRONA [Concomitant]
     Active Substance: METAMIZOLE
     Indication: HEADACHE
  14. BEROTEC [Concomitant]
     Active Substance: FENOTEROL HYDROBROMIDE
     Indication: PRODUCT USED FOR UNKNOWN INDICATION
     Dosage: 20 DRP, UNK
     Route: 055

REACTIONS (5)
  - Choking [Recovering/Resolving]
  - Dyspnoea [Recovering/Resolving]
  - Sleep disorder due to general medical condition, insomnia type [Recovering/Resolving]
  - Weight decreased [Unknown]
  - Asphyxia [Recovering/Resolving]
